FAERS Safety Report 15206980 (Version 2)
Quarter: 2025Q1

REPORT INFORMATION
  Report Type: Report from Study
  Country: PL (occurrence: PL)
  Receive Date: 20180727
  Receipt Date: 20250320
  Transmission Date: 20250409
  Serious: Yes (Other)
  Sender: AUROBINDO
  Company Number: PL-AUROBINDO-AUR-APL-2018-038166

PATIENT

DRUGS (2)
  1. FLUCONAZOLE [Interacting]
     Active Substance: FLUCONAZOLE
     Indication: Product used for unknown indication
     Route: 065
  2. FENTANYL [Interacting]
     Active Substance: FENTANYL
     Indication: Cancer pain
     Route: 065

REACTIONS (5)
  - Drug level increased [Unknown]
  - Respiratory disorder [Unknown]
  - Sedation [Unknown]
  - Altered state of consciousness [Unknown]
  - Drug interaction [Unknown]
